FAERS Safety Report 4367594-6 (Version None)
Quarter: 2004Q2

REPORT INFORMATION
  Report Type: 
  Country: None (occurrence: None)
  Receive Date: 20040601
  Receipt Date: 20030130
  Transmission Date: 20050107
  Serious: Yes (Hospitalization, Disabling, Other)
  Sender: FDA-Public Use
  Company Number: US-MERCK-0302USA00098

PATIENT
  Age: 77 Year
  Sex: Male
  Weight: 90 kg

DRUGS (23)
  1. IMURAN [Concomitant]
     Route: 065
  2. CHLORACON [Concomitant]
     Route: 065
  3. CELEBREX [Concomitant]
     Route: 065
  4. TAGAMET [Concomitant]
     Route: 065
  5. CYANOCOBALAMIN [Concomitant]
     Route: 065
  6. LANOXIN [Concomitant]
     Route: 065
  7. TIAZAC [Concomitant]
     Route: 065
  8. CARTIA (DILTIAZEM HYDROCHLORIDE) [Concomitant]
     Route: 065
  9. FOLIC ACID [Concomitant]
     Route: 065
  10. LASIX [Concomitant]
     Route: 065
  11. GLIPIZIDE [Concomitant]
     Route: 065
  12. MOTRIN [Concomitant]
     Route: 065
     Dates: start: 19900101, end: 20010101
  13. INSULIN [Concomitant]
     Route: 065
  14. INSULIN HUMAN, ISOPHANE [Concomitant]
     Route: 065
  15. IMDUR [Concomitant]
     Route: 065
  16. METHOTREXATE [Concomitant]
     Route: 065
     Dates: start: 20010205
  17. NIACIN [Concomitant]
     Route: 065
  18. POTASSIUM (UNSPECIFIED) [Concomitant]
     Route: 065
  19. PREDNISONE [Concomitant]
     Route: 065
  20. VIOXX [Suspect]
     Indication: RHEUMATOID ARTHRITIS
     Route: 048
     Dates: start: 19990101, end: 20010910
  21. VIOXX [Suspect]
     Indication: OSTEOARTHRITIS
     Route: 048
     Dates: start: 19990101, end: 20010910
  22. FLOMAX [Concomitant]
     Route: 065
     Dates: start: 19990101
  23. VITAMIN E [Concomitant]
     Route: 065

REACTIONS (27)
  - ANGINA PECTORIS [None]
  - ARTHRALGIA [None]
  - ASTHENIA [None]
  - ATRIAL FIBRILLATION [None]
  - BACK PAIN [None]
  - CARDIAC FAILURE CONGESTIVE [None]
  - CEREBROVASCULAR ACCIDENT [None]
  - CHEST PAIN [None]
  - CONDITION AGGRAVATED [None]
  - CORONARY ARTERY DISEASE [None]
  - DIZZINESS [None]
  - DRUG TOXICITY [None]
  - EMOTIONAL DISTRESS [None]
  - EXTRASYSTOLES [None]
  - INJURY [None]
  - MYOCARDIAL INFARCTION [None]
  - MYOCARDIAL ISCHAEMIA [None]
  - NECK PAIN [None]
  - ORAL CANDIDIASIS [None]
  - PAIN [None]
  - POLYMYALGIA RHEUMATICA [None]
  - REFUSAL OF TREATMENT BY PATIENT [None]
  - SKIN ULCER [None]
  - TEMPORAL ARTERITIS [None]
  - THROMBOSIS [None]
  - TRANSIENT ISCHAEMIC ATTACK [None]
  - WANDERING PACEMAKER [None]
